FAERS Safety Report 23053832 (Version 1)
Quarter: 2023Q4

REPORT INFORMATION
  Report Type: Other
  Country: GB (occurrence: None)
  Receive Date: 20231011
  Receipt Date: 20231011
  Transmission Date: 20240110
  Serious: Yes (Other)
  Sender: FDA-Public Use
  Company Number: GB-ROCHE-3436215

PATIENT
  Sex: Male

DRUGS (2)
  1. RISDIPLAM [Suspect]
     Active Substance: RISDIPLAM
     Indication: Product used for unknown indication
     Route: 065
  2. RISDIPLAM [Suspect]
     Active Substance: RISDIPLAM
     Route: 065

REACTIONS (1)
  - Lower limb fracture [Unknown]
